FAERS Safety Report 24180890 (Version 2)
Quarter: 2024Q3

REPORT INFORMATION
  Report Type: Spontaneous
  Country: FR (occurrence: FR)
  Receive Date: 20240806
  Receipt Date: 20240806
  Transmission Date: 20241016
  Serious: Yes (Hospitalization)
  Sender: BRISTOL MYERS SQUIBB
  Company Number: None

PATIENT
  Age: 75 Year
  Sex: Female
  Weight: 63.5 kg

DRUGS (8)
  1. VIDAZA [Suspect]
     Active Substance: AZACITIDINE
     Indication: Myelodysplastic syndrome
     Dosage: 75 MG/M2 OR 118.5 MG PER DAY
     Route: 058
     Dates: start: 20240516, end: 20240523
  2. VIDAZA [Suspect]
     Active Substance: AZACITIDINE
     Dosage: 75 MG/M2 OR 118.5 MG PER DAY
     Route: 058
     Dates: start: 20240617, end: 20240624
  3. AMOXICILLIN [Concomitant]
     Active Substance: AMOXICILLIN
     Indication: Ear pain
     Route: 048
     Dates: start: 20240704, end: 20240705
  4. AMOXICILLIN [Concomitant]
     Active Substance: AMOXICILLIN
     Indication: Odynophagia
  5. ATORVASTATIN [Concomitant]
     Active Substance: ATORVASTATIN
     Indication: Dyslipidaemia
     Route: 048
     Dates: start: 2024, end: 20240707
  6. ERYTHROPOIETIN [Concomitant]
     Active Substance: ERYTHROPOIETIN
     Indication: Myelodysplastic syndrome
     Dosage: 30000 IU/0.75 ML
     Route: 058
     Dates: start: 20240625, end: 20240708
  7. EXJADE [Concomitant]
     Active Substance: DEFERASIROX
     Indication: Iron overload
     Route: 048
     Dates: start: 20240625, end: 20240708
  8. LEVOTHYROXINE [Concomitant]
     Active Substance: LEVOTHYROXINE\LEVOTHYROXINE SODIUM
     Indication: Hypothyroidism
     Dosage: 1-0-0?SCORED TABLET
     Route: 048
     Dates: start: 2024

REACTIONS (1)
  - Purpura [Recovering/Resolving]

NARRATIVE: CASE EVENT DATE: 20240704
